FAERS Safety Report 11576205 (Version 1)
Quarter: 2015Q3

REPORT INFORMATION
  Report Type: Spontaneous
  Country: US (occurrence: US)
  Receive Date: 20150916
  Receipt Date: 20150916
  Transmission Date: 20151125
  Serious: No
  Sender: FDA-Public Use
  Company Number: US-ELI_LILLY_AND_COMPANY-US201305003701

PATIENT
  Age: 51 Year
  Sex: Female

DRUGS (1)
  1. HUMALOG [Suspect]
     Active Substance: INSULIN LISPRO

REACTIONS (2)
  - Blood glucose increased [Not Recovered/Not Resolved]
  - Sinus disorder [Unknown]

NARRATIVE: CASE EVENT DATE: 20130419
